FAERS Safety Report 20076311 (Version 1)
Quarter: 2021Q4

REPORT INFORMATION
  Report Type: Report from Study
  Country: FR (occurrence: FR)
  Receive Date: 20211116
  Receipt Date: 20211116
  Transmission Date: 20220303
  Serious: Yes (Other)
  Sender: FDA-Public Use
  Company Number: FR-Merck Healthcare KGaA-9277835

PATIENT
  Age: 65 Year
  Sex: Male

DRUGS (5)
  1. CETUXIMAB [Suspect]
     Active Substance: CETUXIMAB
     Indication: Squamous cell carcinoma of head and neck
     Dosage: 840 MG, UNKNOWN
     Route: 042
     Dates: start: 20200110
  2. CETUXIMAB [Suspect]
     Active Substance: CETUXIMAB
     Dosage: 500 MG, UNKNOWN
     Route: 042
     Dates: start: 20200117
  3. CETUXIMAB [Suspect]
     Active Substance: CETUXIMAB
     Dosage: 500 MG, UNKNOWN
     Route: 042
     Dates: start: 20200131
  4. AVELUMAB [Concomitant]
     Active Substance: AVELUMAB
     Indication: Squamous cell carcinoma of head and neck
     Dosage: 930 MG, UNKNOWN
     Route: 042
     Dates: start: 20200110
  5. AVELUMAB [Concomitant]
     Active Substance: AVELUMAB
     Dosage: 930 MG, UNKNOWN
     Route: 042
     Dates: start: 20200320

REACTIONS (4)
  - Scab [Recovered/Resolved]
  - Erythema [Recovered/Resolved]
  - Osteomyelitis bacterial [Recovered/Resolved]
  - Diabetic foot [Recovered/Resolved]

NARRATIVE: CASE EVENT DATE: 20200101
